FAERS Safety Report 24193169 (Version 1)
Quarter: 2024Q3

REPORT INFORMATION
  Report Type: Spontaneous
  Country: US (occurrence: US)
  Receive Date: 20240809
  Receipt Date: 20240809
  Transmission Date: 20241017
  Serious: No
  Sender: CSL BEHRING
  Company Number: UA-BEH-2024176881

PATIENT
  Sex: Male

DRUGS (20)
  1. HIZENTRA [Suspect]
     Active Substance: HUMAN IMMUNOGLOBULIN G
     Indication: Chronic inflammatory demyelinating polyradiculoneuropathy
     Dosage: 10G/50 ML
     Route: 058
     Dates: start: 20230118
  2. AZITHROMYCIN [Concomitant]
     Active Substance: AZITHROMYCIN
     Dosage: 500 MG
  3. BELSOMRA [Concomitant]
     Active Substance: SUVOREXANT
     Dosage: 20 MG
  4. BELSOMRA [Concomitant]
     Active Substance: SUVOREXANT
     Dosage: 5 MG
  5. BIOTIN [Concomitant]
     Active Substance: BIOTIN
     Dosage: 10 MG
  6. CALCIUM [Concomitant]
     Active Substance: CALCIUM
  7. CLONAZEPAM [Concomitant]
     Active Substance: CLONAZEPAM
     Dosage: 0.5 MG
  8. DEXEDRINE [Concomitant]
     Active Substance: DEXTROAMPHETAMINE SULFATE
  9. DEXTROAMPHETAMINE [Concomitant]
     Active Substance: DEXTROAMPHETAMINE
     Dosage: 5 MG
  10. DEXTROAMPHETAMINE [Concomitant]
     Active Substance: DEXTROAMPHETAMINE
     Dosage: 5 MG
  11. ESZOPICLONE [Concomitant]
     Active Substance: ESZOPICLONE
     Dosage: 1 MG
  12. NEXIUM 24HR [Concomitant]
     Active Substance: ESOMEPRAZOLE MAGNESIUM
     Dosage: 20 MG
  13. ONDANSETRON [Concomitant]
     Active Substance: ONDANSETRON
  14. PAXLOVID [Concomitant]
     Active Substance: NIRMATRELVIR\RITONAVIR
  15. PREDNISONE [Concomitant]
     Active Substance: PREDNISONE
     Dosage: 5 MG
  16. PREGABALIN [Concomitant]
     Active Substance: PREGABALIN
     Dosage: 25 MG
  17. VALACYCLOVIR [Concomitant]
     Active Substance: VALACYCLOVIR HYDROCHLORIDE
     Dosage: 1 G
  18. VALTREX [Concomitant]
     Active Substance: VALACYCLOVIR HYDROCHLORIDE
     Dosage: 1 G
  19. VITAMIN D [Concomitant]
     Active Substance: VITAMIN D NOS
  20. XYZAL [Concomitant]
     Active Substance: LEVOCETIRIZINE DIHYDROCHLORIDE
     Dosage: 5 MG

REACTIONS (2)
  - Condition aggravated [Unknown]
  - Overwork [Unknown]
